FAERS Safety Report 20523604 (Version 1)
Quarter: 2022Q1

REPORT INFORMATION
  Report Type: Spontaneous
  Country: IN (occurrence: IN)
  Receive Date: 20220228
  Receipt Date: 20220228
  Transmission Date: 20220423
  Serious: Yes (Death, Other)
  Sender: FDA-Public Use
  Company Number: IN-GLENMARK PHARMACEUTICALS-2022GMK070657

PATIENT

DRUGS (1)
  1. ABIRATERONE ACETATE [Suspect]
     Active Substance: ABIRATERONE ACETATE
     Indication: Neoplasm malignant
     Dosage: 1 DOSAGE FORM, QD
     Route: 048

REACTIONS (2)
  - Neoplasm malignant [Fatal]
  - Blood potassium decreased [Fatal]

NARRATIVE: CASE EVENT DATE: 20211001
